FAERS Safety Report 6529481-4 (Version None)
Quarter: 2010Q1

REPORT INFORMATION
  Report Type: 
  Country: None (occurrence: None)
  Receive Date: 20100107
  Receipt Date: 20091221
  Transmission Date: 20100710
  Serious: Yes (Other)
  Sender: FDA-Public Use
  Company Number: PHHY2009NL57711

PATIENT
  Sex: Male

DRUGS (1)
  1. FORADIL / FOR 258A / CGP 25827 [Suspect]

REACTIONS (1)
  - DIABETES MELLITUS [None]
